FAERS Safety Report 17282992 (Version 1)
Quarter: 2020Q1

REPORT INFORMATION
  Report Type: Spontaneous
  Country: US (occurrence: US)
  Receive Date: 20200117
  Receipt Date: 20200117
  Transmission Date: 20200409
  Serious: No
  Sender: FDA-Public Use
  Company Number: US-DEXPHARM-20190214

PATIENT
  Age: 65 Year
  Sex: Male
  Weight: 106.58 kg

DRUGS (4)
  1. GABAPENTIN. [Concomitant]
     Active Substance: GABAPENTIN
     Indication: LIMB DISCOMFORT
     Dosage: UNK
     Route: 065
     Dates: start: 2017
  2. TAMSULOSIN [Concomitant]
     Active Substance: TAMSULOSIN
     Indication: PROSTATIC DISORDER
     Dosage: UNK
     Route: 065
     Dates: start: 2009
  3. LOPRESSOR [Concomitant]
     Active Substance: METOPROLOL TARTRATE
     Indication: HYPERTENSION
     Dosage: UNK
     Route: 065
     Dates: start: 1999
  4. OMEPRAZOLE DELAYED RELEASE ORALLY DISINTEGRATING STRAWBERRY TABLETS 20 [Suspect]
     Active Substance: OMEPRAZOLE
     Indication: DYSPEPSIA
     Dosage: 20 MG, SINGLE
     Route: 048
     Dates: start: 20190331, end: 20190331

REACTIONS (1)
  - Dysgeusia [Recovered/Resolved]

NARRATIVE: CASE EVENT DATE: 20190331
